FAERS Safety Report 20917990 (Version 1)
Quarter: 2022Q2

REPORT INFORMATION
  Report Type: Report from Study
  Country: JP (occurrence: JP)
  Receive Date: 20220606
  Receipt Date: 20220606
  Transmission Date: 20220721
  Serious: Yes (Hospitalization)
  Sender: FDA-Public Use
  Company Number: JP-ASTELLAS-2020US007186

PATIENT
  Age: 79 Year
  Sex: Female

DRUGS (35)
  1. BENDAMUSTINE HYDROCHLORIDE [Suspect]
     Active Substance: BENDAMUSTINE HYDROCHLORIDE
     Indication: Diffuse large B-cell lymphoma
     Dosage: 90 MG/M2, CYCLIC (1 IN 1.5 WEEKS) (CYCLE 1 DAY 2)
     Route: 042
     Dates: start: 20190403
  2. BENDAMUSTINE HYDROCHLORIDE [Suspect]
     Active Substance: BENDAMUSTINE HYDROCHLORIDE
     Dosage: 90 MG/M2, CYCLIC (1 IN 1.5 WEEKS) (CYCLE 1 DAY 3)
     Route: 042
     Dates: start: 20190404
  3. BENDAMUSTINE HYDROCHLORIDE [Suspect]
     Active Substance: BENDAMUSTINE HYDROCHLORIDE
     Dosage: 90 MG/M2, CYCLIC (1 IN 1.5 WEEKS) (CYCLE 2 DAY 1)
     Route: 042
     Dates: start: 20190425
  4. BENDAMUSTINE HYDROCHLORIDE [Suspect]
     Active Substance: BENDAMUSTINE HYDROCHLORIDE
     Dosage: 90 MG/M2, CYCLIC (1 IN 1.5 WEEKS) (CYCLE 3 DAY 1)
     Route: 042
     Dates: start: 20190514
  5. BENDAMUSTINE HYDROCHLORIDE [Suspect]
     Active Substance: BENDAMUSTINE HYDROCHLORIDE
     Dosage: 90 MG/M2, CYCLIC (1 IN 1.5 WEEKS) (CYCLE 3 DAY 2)
     Route: 042
     Dates: start: 20190515
  6. BENDAMUSTINE HYDROCHLORIDE [Suspect]
     Active Substance: BENDAMUSTINE HYDROCHLORIDE
     Dosage: 90 MG/M2, CYCLIC (1 IN 1.5 WEEKS) (CYCLE 4 DAY 1)
     Route: 042
     Dates: start: 20190604
  7. BENDAMUSTINE HYDROCHLORIDE [Suspect]
     Active Substance: BENDAMUSTINE HYDROCHLORIDE
     Dosage: 90 MG/M2, CYCLIC (1 IN 1.5 WEEKS) (CYCLE 4 DAY 2)
     Route: 042
     Dates: start: 20190605
  8. BENDAMUSTINE HYDROCHLORIDE [Suspect]
     Active Substance: BENDAMUSTINE HYDROCHLORIDE
     Dosage: 90 MG/M2, CYCLIC (1 IN 1.5 WEEKS) (CYCLE 5 DAY 1)
     Route: 042
     Dates: start: 20190702
  9. BENDAMUSTINE HYDROCHLORIDE [Suspect]
     Active Substance: BENDAMUSTINE HYDROCHLORIDE
     Dosage: 90 MG/M2, CYCLIC (1 IN 1.5 WEEKS) (CYCLE 5 DAY 2)
     Route: 042
     Dates: start: 20190703
  10. BENDAMUSTINE HYDROCHLORIDE [Suspect]
     Active Substance: BENDAMUSTINE HYDROCHLORIDE
     Dosage: 90 MG/M2, CYCLIC (1 IN 1.5 WEEKS) (CYCLE 6 DAY 1)
     Route: 042
     Dates: start: 20190724
  11. BENDAMUSTINE HYDROCHLORIDE [Suspect]
     Active Substance: BENDAMUSTINE HYDROCHLORIDE
     Dosage: 90 MG/M2, CYCLIC (1 IN 1.5 WEEKS) (CYCLE 6 DAY 2)
     Route: 042
     Dates: start: 20190725
  12. POLATUZUMAB VEDOTIN [Suspect]
     Active Substance: POLATUZUMAB VEDOTIN
     Indication: Diffuse large B-cell lymphoma
     Dosage: 1.8 MG/KG, CYCLIC (1 IN 3 WEEKS) (CYCLE1 DAY 1)
     Route: 042
     Dates: start: 20190403
  13. POLATUZUMAB VEDOTIN [Suspect]
     Active Substance: POLATUZUMAB VEDOTIN
     Dosage: 1.8 MG/KG, CYCLIC (1 IN 3 WEEKS) (CYCLE 2, DAY 1)
     Route: 042
     Dates: start: 20190425
  14. POLATUZUMAB VEDOTIN [Suspect]
     Active Substance: POLATUZUMAB VEDOTIN
     Dosage: 1.8 MG/KG, CYCLIC (1 IN 3 WEEKS) (CYCLE 3, DAY 1)
     Route: 042
     Dates: start: 20190514
  15. POLATUZUMAB VEDOTIN [Suspect]
     Active Substance: POLATUZUMAB VEDOTIN
     Dosage: 1.8 MG/KG, CYCLIC (1 IN 3 WEEKS) (CYCLE 4, DAY 1)
     Route: 042
     Dates: start: 20190604
  16. POLATUZUMAB VEDOTIN [Suspect]
     Active Substance: POLATUZUMAB VEDOTIN
     Dosage: 1.8 MG/KG, CYCLIC (1 IN 3 WEEKS) (CYCLE 5, DAY 1)
     Route: 042
     Dates: start: 20190702
  17. POLATUZUMAB VEDOTIN [Suspect]
     Active Substance: POLATUZUMAB VEDOTIN
     Dosage: 1.8 MG/KG, CYCLIC (1 IN 3 WEEKS) (CYCLE 6, DAY 1)
     Route: 042
     Dates: start: 20190724
  18. POLATUZUMAB VEDOTIN [Suspect]
     Active Substance: POLATUZUMAB VEDOTIN
     Dosage: 1.8 MG/KG, CYCLIC (1 IN 3 WEEKS) (CYCLE 6, DAY 2)
     Route: 042
     Dates: start: 20190725
  19. RITUXIMAB [Suspect]
     Active Substance: RITUXIMAB
     Indication: Diffuse large B-cell lymphoma
     Dosage: 375 MG/M2, CYCLIC (1 IN 3 WEEKS) (CYCLE 1 DAY 1))
     Route: 042
     Dates: start: 20190402
  20. RITUXIMAB [Suspect]
     Active Substance: RITUXIMAB
     Dosage: 560 MG, CYCLIC (1 IN 3 D)
     Route: 042
     Dates: start: 20190402
  21. RITUXIMAB [Suspect]
     Active Substance: RITUXIMAB
     Dosage: 560 MG, CYCLIC  (CYCLE 2 DAY1)
     Route: 042
     Dates: start: 20190425
  22. RITUXIMAB [Suspect]
     Active Substance: RITUXIMAB
     Dosage: 560 MG, CYCLIC (CYCLE 3 DAY1)
     Route: 042
     Dates: start: 20190514
  23. RITUXIMAB [Suspect]
     Active Substance: RITUXIMAB
     Dosage: 560 MG, CYCLIC (1 IN 3 D) (CYCLE 4 DAY1)
     Route: 042
     Dates: start: 20190604
  24. RITUXIMAB [Suspect]
     Active Substance: RITUXIMAB
     Dosage: 560 MG, CYCLIC (1 IN 3 D) (CYCLE 5 DAY1)
     Route: 042
     Dates: start: 20190702
  25. RITUXIMAB [Suspect]
     Active Substance: RITUXIMAB
     Dosage: 560 MG, CYCLIC (CYCLE 6 DAY1)
     Route: 042
     Dates: start: 20190724
  26. RITUXIMAB [Suspect]
     Active Substance: RITUXIMAB
     Dosage: 560 MG, CYCLIC (CYCLE 6 DAY2)
     Route: 042
     Dates: start: 20190725
  27. LANSOPRAZOLE [Concomitant]
     Active Substance: LANSOPRAZOLE
     Indication: Gastritis prophylaxis
     Route: 048
  28. VALACYCLOVIR HYDROCHLORIDE [Concomitant]
     Active Substance: VALACYCLOVIR HYDROCHLORIDE
     Indication: Infection prophylaxis
     Dosage: 500 MG, ONCE DAILY (1 IN 1 D)
     Route: 048
  29. SENNA [Concomitant]
     Active Substance: SENNA LEAF\SENNOSIDES\SENNOSIDES A AND B
     Indication: Constipation
     Dosage: 80 MG, ONCE DAILY (1 IN 1 DAY)
     Route: 048
  30. MAGNESIUM OXIDE [Concomitant]
     Active Substance: MAGNESIUM OXIDE
     Indication: Constipation
     Dosage: 330 MG, ONCE DAILY (1 IN 1 DAY)
     Route: 048
  31. WARFARIN [Concomitant]
     Active Substance: WARFARIN
     Indication: Venous thrombosis
     Dosage: 1 MG, ONCE DAILY (1 IN 1 DAY)
     Route: 048
  32. GLYCOSAMINOGLYCANS [Concomitant]
     Active Substance: GLYCOSAMINOGLYCANS
     Indication: Asteatosis
     Dosage: UNK UNK, UNKNOWN FREQ.
     Route: 061
  33. DORIPENEM MONOHYDRATE [Concomitant]
     Active Substance: DORIPENEM MONOHYDRATE
     Indication: Product used for unknown indication
     Dosage: UNK UNK, UNKNOWN FREQ.
     Route: 042
  34. LOXOPROFEN [Concomitant]
     Active Substance: LOXOPROFEN
     Indication: Product used for unknown indication
     Dosage: UNK UNK, UNKNOWN FREQ.
     Route: 048
  35. TEPRENONE [Concomitant]
     Active Substance: TEPRENONE
     Indication: Product used for unknown indication
     Dosage: UNK UNK, UNKNOWN FREQ.
     Route: 048

REACTIONS (1)
  - Klebsiella bacteraemia [Recovered/Resolved]

NARRATIVE: CASE EVENT DATE: 20190730
